FAERS Safety Report 6134858-5 (Version None)
Quarter: 2009Q1

REPORT INFORMATION
  Report Type: 
  Country: None (occurrence: None)
  Receive Date: 20090327
  Receipt Date: 20090320
  Transmission Date: 20090719
  Serious: Yes (Hospitalization)
  Sender: FDA-Public Use
  Company Number: FR-AVENTIS-200911140FR

PATIENT
  Age: 55 Year
  Sex: Female

DRUGS (4)
  1. TAXOTERE [Suspect]
     Route: 042
     Dates: start: 20090109, end: 20090109
  2. FLUOROURACIL [Concomitant]
     Dates: start: 20081015, end: 20081126
  3. EPIRUBICIN [Concomitant]
     Dates: start: 20081015, end: 20081126
  4. CYCLOPHOSPHAMIDE [Concomitant]
     Dates: start: 20081015, end: 20081126

REACTIONS (7)
  - BONE MARROW FAILURE [None]
  - EPISTAXIS [None]
  - MUCOSAL INFLAMMATION [None]
  - PARAESTHESIA [None]
  - PORPHYRIA [None]
  - RECTAL HAEMORRHAGE [None]
  - SKIN LESION [None]
